FAERS Safety Report 4545153-X (Version None)
Quarter: 2005Q1

REPORT INFORMATION
  Report Type: 
  Country: None (occurrence: None)
  Receive Date: 20050103
  Receipt Date: 20050103
  Transmission Date: 20050727
  Serious: Yes (Other)
  Sender: FDA-Public Use
  Company Number: None

PATIENT

DRUGS (1)
  1. GLUCOPHAGE [Suspect]

REACTIONS (3)
  - BLOOD PRESSURE DECREASED [None]
  - DRUG INTOLERANCE [None]
  - PHARMACEUTICAL PRODUCT COMPLAINT [None]
